FAERS Safety Report 6752183-6 (Version None)
Quarter: 2010Q2

REPORT INFORMATION
  Report Type: 
  Country: None (occurrence: None)
  Receive Date: 20100601
  Receipt Date: 20100601
  Transmission Date: 20101027
  Serious: Yes (Other)
  Sender: FDA-Public Use
  Company Number: None

PATIENT
  Age: 45 Year
  Sex: Male

DRUGS (2)
  1. SEROQUEL [Suspect]
     Indication: ALCOHOL WITHDRAWAL SYNDROME
     Dosage: 400MG DAILY
  2. TRANXENE [Suspect]
     Indication: ALCOHOL WITHDRAWAL SYNDROME
     Dosage: THREE TIMES A DAY
     Dates: start: 20100408, end: 20100422

REACTIONS (6)
  - BLOOD PRESSURE DECREASED [None]
  - DYSARTHRIA [None]
  - GAIT DISTURBANCE [None]
  - HEART RATE INCREASED [None]
  - STUPOR [None]
  - TREATMENT NONCOMPLIANCE [None]
